FAERS Safety Report 9417454 (Version 2)
Quarter: 2014Q1

REPORT INFORMATION
  Report Type: Spontaneous
  Country: FR (occurrence: None)
  Receive Date: 20130719
  Receipt Date: 20140116
  Transmission Date: 20141002
  Serious: Yes (Other)
  Sender: FDA-Public Use
  Company Number: AXC-2013-000125

PATIENT
  Age: 63 Year
  Sex: Female
  Weight: 55 kg

DRUGS (2)
  1. DELURSAN [Suspect]
     Indication: BILIARY CIRRHOSIS
     Dates: start: 201207, end: 201303
  2. DELURSAN [Suspect]
     Indication: BILIARY CIRRHOSIS
     Dates: start: 201303, end: 201303

REACTIONS (6)
  - Abnormal behaviour [None]
  - Rash pruritic [None]
  - Dry skin [None]
  - Miliaria [None]
  - Transient global amnesia [None]
  - Skin lesion [None]
